FAERS Safety Report 7117505-5 (Version None)
Quarter: 2010Q4

REPORT INFORMATION
  Report Type: 
  Country: None (occurrence: None)
  Receive Date: 20101122
  Receipt Date: 20101111
  Transmission Date: 20110411
  Serious: Yes (Other)
  Sender: FDA-Public Use
  Company Number: US-SANOFI-AVENTIS-2010SA058708

PATIENT
  Sex: Female

DRUGS (2)
  1. SOLOSTAR [Suspect]
     Route: 058
  2. LANTUS [Suspect]

REACTIONS (3)
  - DEVICE MALFUNCTION [None]
  - PRODUCT QUALITY ISSUE [None]
  - SYRINGE ISSUE [None]
